FAERS Safety Report 8525176-6 (Version None)
Quarter: 2012Q3

REPORT INFORMATION
  Report Type: 
  Country: None (occurrence: None)
  Receive Date: 20120720
  Receipt Date: 20120709
  Transmission Date: 20120928
  Serious: Yes (Other)
  Sender: FDA-Public Use
  Company Number: US-ELI_LILLY_AND_COMPANY-US201207002971

PATIENT
  Sex: Male

DRUGS (5)
  1. HUMALOG [Suspect]
     Indication: DIABETES MELLITUS
     Dosage: 10 U, BID
  2. HUMALOG [Suspect]
     Dosage: 11 U, EACH EVENING
  3. HUMULIN N [Suspect]
     Dosage: 10 U, BID
  4. HUMULIN N [Suspect]
     Dosage: 11 U, EACH EVENING
  5. LANTUS [Concomitant]

REACTIONS (2)
  - DIABETIC NEUROPATHY [None]
  - BLINDNESS [None]
